FAERS Safety Report 5801718-6 (Version None)
Quarter: 2008Q3

REPORT INFORMATION
  Report Type: 
  Country: None (occurrence: None)
  Receive Date: 20080707
  Receipt Date: 20080703
  Transmission Date: 20090109
  Serious: Yes (Hospitalization)
  Sender: FDA-Public Use
  Company Number: B0527553A

PATIENT
  Age: 43 Year
  Sex: Female

DRUGS (7)
  1. ULTIVA [Suspect]
     Route: 042
     Dates: start: 20071120, end: 20071120
  2. CEFAZOLIN [Suspect]
     Indication: PREOPERATIVE CARE
     Dosage: 2G SINGLE DOSE
     Route: 042
     Dates: start: 20071120, end: 20071120
  3. TAGAMET [Suspect]
     Indication: PREOPERATIVE CARE
     Dosage: 200MG SINGLE DOSE
     Route: 048
  4. ATARAX [Suspect]
     Indication: PREOPERATIVE CARE
     Dosage: 100MG SINGLE DOSE
     Route: 042
     Dates: start: 20071120, end: 20071120
  5. XANAX [Suspect]
     Indication: PREOPERATIVE CARE
     Dosage: .25MG SINGLE DOSE
     Route: 048
     Dates: start: 20071120, end: 20071120
  6. DIPRIVAN [Suspect]
     Route: 042
     Dates: start: 20071120, end: 20071120
  7. CELOCURINE [Suspect]
     Route: 042
     Dates: start: 20071120, end: 20071120

REACTIONS (4)
  - ANAPHYLACTIC REACTION [None]
  - BLOOD PRESSURE DECREASED [None]
  - BRONCHOSPASM [None]
  - TRYPTASE INCREASED [None]
